FAERS Safety Report 6807949-0 (Version None)
Quarter: 2010Q2

REPORT INFORMATION
  Report Type: 
  Country: None (occurrence: None)
  Receive Date: 20100629
  Receipt Date: 20090212
  Transmission Date: 20101027
  Serious: No
  Sender: FDA-Public Use
  Company Number: US-PFIZER INC-2009169780

PATIENT
  Sex: Male
  Weight: 78.017 kg

DRUGS (1)
  1. ARTHROTEC [Suspect]
     Indication: INTERVERTEBRAL DISC PROTRUSION
     Route: 048
     Dates: start: 20080101, end: 20090204

REACTIONS (2)
  - ERECTILE DYSFUNCTION [None]
  - INTERVERTEBRAL DISC PROTRUSION [None]
